FAERS Safety Report 9410440 (Version 1)
Quarter: 2013Q3

REPORT INFORMATION
  Report Type: Spontaneous
  Country: ZA (occurrence: ZA)
  Receive Date: 20130719
  Receipt Date: 20130719
  Transmission Date: 20140515
  Serious: Yes (Other)
  Sender: FDA-Public Use
  Company Number: ZA-GLAXOSMITHKLINE-B0909084A

PATIENT
  Age: 55 Year
  Sex: Male

DRUGS (2)
  1. MALANIL [Suspect]
     Indication: MALARIA PROPHYLAXIS
     Route: 065
  2. MULTIVITAMINS [Concomitant]

REACTIONS (5)
  - Malaria [Recovered/Resolved]
  - Nausea [Recovered/Resolved]
  - Malaise [Recovered/Resolved]
  - Influenza like illness [Recovered/Resolved]
  - Drug ineffective [Recovered/Resolved]
